FAERS Safety Report 7101942-9 (Version None)
Quarter: 2010Q4

REPORT INFORMATION
  Report Type: 
  Country: None (occurrence: None)
  Receive Date: 20101115
  Receipt Date: 20101103
  Transmission Date: 20110411
  Serious: Yes (Other)
  Sender: FDA-Public Use
  Company Number: CA-JNJFOC-20100402790

PATIENT
  Sex: Female
  Weight: 44 kg

DRUGS (4)
  1. REMICADE [Suspect]
     Indication: CROHN'S DISEASE
     Route: 042
  2. REMICADE [Suspect]
     Dosage: 14 DOSES ON UNSPECIFIED DATES
     Route: 042
  3. AERIUS [Concomitant]
     Indication: PREMEDICATION
     Route: 048
  4. SOLU-CORTEF [Concomitant]
     Indication: PREMEDICATION
     Route: 042

REACTIONS (1)
  - LUNG NEOPLASM [None]
